FAERS Safety Report 11173837 (Version 2)
Quarter: 2015Q2

REPORT INFORMATION
  Report Type: Spontaneous
  Country: US (occurrence: None)
  Receive Date: 20150605
  Receipt Date: 20150611
  Transmission Date: 20150821
  Serious: Yes (Other)
  Sender: FDA-Public Use
  Company Number: UCM201505-000376

PATIENT
  Age: 6 Year
  Sex: Male

DRUGS (10)
  1. LORAZEPAM. [Concomitant]
     Active Substance: LORAZEPAM
  2. PENTOBARBITAL [Concomitant]
     Active Substance: PENTOBARBITAL
  3. LAMOTRIGINE. [Concomitant]
     Active Substance: LAMOTRIGINE
  4. TOPIRAMATE. [Suspect]
     Active Substance: TOPIRAMATE
     Indication: EPILEPSY
  5. FELBAMATE. [Concomitant]
     Active Substance: FELBAMATE
  6. MIDAZOLAM [Concomitant]
     Active Substance: MIDAZOLAM\MIDAZOLAM HYDROCHLORIDE
  7. LACOSAMIDE [Concomitant]
     Active Substance: LACOSAMIDE
  8. PHENOBARBITAL. [Concomitant]
     Active Substance: PHENOBARBITAL
  9. IMMUNOGLOBULIN [Concomitant]
     Active Substance: HUMAN IMMUNOGLOBULIN G
  10. LEVETIRACETAM. [Concomitant]
     Active Substance: LEVETIRACETAM

REACTIONS (1)
  - Nephrolithiasis [None]
